FAERS Safety Report 21683765 (Version 1)
Quarter: 2022Q4

REPORT INFORMATION
  Report Type: Spontaneous
  Country: US (occurrence: None)
  Receive Date: 20221203
  Receipt Date: 20221203
  Transmission Date: 20230112
  Serious: Yes (Death)
  Sender: FDA-Public Use
  Company Number: None

PATIENT
  Age: 47 Year
  Sex: Male
  Weight: 86.85 kg

DRUGS (2)
  1. LUMASON [Suspect]
     Active Substance: SULFUR HEXAFLUORIDE
     Indication: Ultrasound scan
     Dosage: FREQUENCY : AS NEEDED;?
     Route: 042
     Dates: start: 20221203, end: 20221203
  2. LUMASON (SULFUR HEXAFLUORIDE LIPID -TYPE A MICROSPHERE) [Concomitant]

REACTIONS (2)
  - Malaise [None]
  - Respiratory distress [None]

NARRATIVE: CASE EVENT DATE: 20221203
